FAERS Safety Report 7635137 (Version 9)
Quarter: 2014Q2

REPORT INFORMATION
  Report Type: Spontaneous
  Country: US (occurrence: US)
  Receive Date: 20101020
  Receipt Date: 20140606
  Transmission Date: 20141212
  Serious: Yes (Death, Hospitalization, Other)
  Sender: FDA-Public Use
  Company Number: US-009507513-1010USA01772

PATIENT
  Sex: Female
  Weight: 93.44 kg

DRUGS (7)
  1. FOSAMAX [Suspect]
     Indication: OSTEOPENIA
     Dosage: 10 MG, QD
     Route: 048
     Dates: start: 199612, end: 2001
  2. FOSAMAX [Suspect]
     Dosage: 70 MG, QW
     Route: 048
     Dates: start: 2001, end: 20081117
  3. FOSAMAX [Suspect]
     Dosage: 70 MG, QW
     Route: 048
     Dates: start: 20081003
  4. FOSAMAX [Suspect]
     Indication: OSTEOPENIA
  5. MK-0805 [Concomitant]
     Indication: SWELLING
  6. ESTRADIOL [Suspect]
     Indication: HORMONE THERAPY
     Dates: start: 1994
  7. FOSAMAX PLUS D [Suspect]
     Indication: OSTEOPENIA
     Dosage: 70/2800
     Route: 048
     Dates: start: 20070127, end: 200704

REACTIONS (55)
  - Fracture nonunion [Unknown]
  - Abscess limb [Not Recovered/Not Resolved]
  - Hypoacusis [Unknown]
  - Osteomyelitis acute [Not Recovered/Not Resolved]
  - Device failure [Unknown]
  - Death [Fatal]
  - Necrosis [Unknown]
  - Osteomyelitis chronic [Unknown]
  - Thrombocytosis [Unknown]
  - Granuloma [Unknown]
  - Urinary tract infection [Unknown]
  - Bone disorder [Not Recovered/Not Resolved]
  - Anaemia [Not Recovered/Not Resolved]
  - Back disorder [Unknown]
  - Blood albumin decreased [Unknown]
  - Pyrexia [Unknown]
  - Femur fracture [Unknown]
  - Femur fracture [Unknown]
  - Low turnover osteopathy [Unknown]
  - Tooth disorder [Unknown]
  - Hyperlipidaemia [Not Recovered/Not Resolved]
  - Cellulitis [Unknown]
  - Vitamin D deficiency [Not Recovered/Not Resolved]
  - Dermatitis contact [Unknown]
  - Blood glucose increased [Unknown]
  - Impaired healing [Unknown]
  - Fall [Unknown]
  - Fall [Unknown]
  - Intervertebral disc degeneration [Unknown]
  - Dupuytren^s contracture [Unknown]
  - Fungal infection [Unknown]
  - Hypercalciuria [Unknown]
  - Impaired healing [Unknown]
  - Sinusitis [Unknown]
  - Bronchitis [Unknown]
  - Patellofemoral pain syndrome [Unknown]
  - Abscess [Unknown]
  - Osteoporosis [Unknown]
  - Dermatitis contact [Unknown]
  - Cervical radiculopathy [Unknown]
  - Intervertebral disc protrusion [Unknown]
  - Rotator cuff syndrome [Unknown]
  - Intervertebral disc protrusion [Unknown]
  - Hiatus hernia [Unknown]
  - Haemorrhoids [Unknown]
  - Bone disorder [Unknown]
  - Chondropathy [Unknown]
  - Depression [Not Recovered/Not Resolved]
  - Fatigue [Unknown]
  - Tooth fracture [Unknown]
  - Tooth disorder [Unknown]
  - Erosive oesophagitis [Unknown]
  - Constipation [Unknown]
  - Musculoskeletal pain [Unknown]
  - Gastrooesophageal reflux disease [Not Recovered/Not Resolved]
